FAERS Safety Report 8940409 (Version 1)
Quarter: 2012Q4

REPORT INFORMATION
  Report Type: 
  Country: US (occurrence: US)
  Receive Date: 20121203
  Receipt Date: 20121203
  Transmission Date: 20130627
  Serious: No
  Sender: FDA-Public Use
  Company Number: US-ASTRAZENECA-2012SE86000

PATIENT
  Age: 72 Year
  Sex: Female
  Weight: 80.7 kg

DRUGS (7)
  1. NEXIUM [Suspect]
     Indication: GASTROOESOPHAGEAL REFLUX DISEASE
     Dosage: 40 mg, daily (at 3 pm)
     Route: 048
     Dates: start: 20121110, end: 20121110
  2. NEXIUM [Suspect]
     Indication: GASTROOESOPHAGEAL REFLUX DISEASE
     Dosage: 40 mg, daily (in the morning -7 or 8 am)
     Route: 048
     Dates: start: 20121111
  3. LISINOPRIL [Suspect]
     Route: 048
  4. HYDROCHLOROTHIAZIDE [Concomitant]
     Route: 048
  5. LOVASTATIN [Concomitant]
     Route: 048
  6. ASPIRIN [Concomitant]
     Route: 048
  7. CALCIUM [Concomitant]

REACTIONS (7)
  - Fatigue [Recovered/Resolved]
  - Blood glucose increased [Recovering/Resolving]
  - Blood cholesterol increased [Unknown]
  - Hypertension [Unknown]
  - Diabetes mellitus [Unknown]
  - Dizziness [Recovered/Resolved]
  - Intentional drug misuse [Recovered/Resolved]
